FAERS Safety Report 11883882 (Version 1)
Quarter: 2016Q1

REPORT INFORMATION
  Report Type: Report from Study
  Country: US (occurrence: US)
  Receive Date: 20160101
  Receipt Date: 20160101
  Transmission Date: 20160526
  Serious: Yes (Death, Other)
  Sender: FDA-Public Use
  Company Number: US-ROCHE-1681973

PATIENT
  Sex: Male

DRUGS (7)
  1. COBIMETINIB [Suspect]
     Active Substance: COBIMETINIB
     Indication: METASTATIC MALIGNANT MELANOMA
     Dosage: 3 PILLS (60MG) A DAY
     Route: 065
     Dates: end: 20151218
  2. COBIMETINIB [Suspect]
     Active Substance: COBIMETINIB
     Indication: MALIGNANT MELANOMA
  3. LORAZEPAM. [Concomitant]
     Active Substance: LORAZEPAM
  4. ATROPINE. [Concomitant]
     Active Substance: ATROPINE
  5. ZELBORAF [Suspect]
     Active Substance: VEMURAFENIB
     Indication: MALIGNANT MELANOMA
  6. ZELBORAF [Suspect]
     Active Substance: VEMURAFENIB
     Indication: METASTATIC MALIGNANT MELANOMA
     Dosage: DAYS OFF 7 DAYS ON 21 (240MG 4 TABLETS BY MOUTH)
     Route: 048
     Dates: start: 20151203, end: 20151222
  7. MORPHINE [Concomitant]
     Active Substance: MORPHINE

REACTIONS (5)
  - Ill-defined disorder [Not Recovered/Not Resolved]
  - Dysphagia [Not Recovered/Not Resolved]
  - Death [Fatal]
  - Renal impairment [Not Recovered/Not Resolved]
  - Drug ineffective [Unknown]
